FAERS Safety Report 7585431-3 (Version None)
Quarter: 2011Q3

REPORT INFORMATION
  Report Type: 
  Country: None (occurrence: None)
  Receive Date: 20110701
  Receipt Date: 20110621
  Transmission Date: 20111222
  Serious: Yes (Hospitalization, Other)
  Sender: FDA-Public Use
  Company Number: US-BAYER-2011-015279

PATIENT
  Age: 22 Year
  Sex: Female
  Weight: 97.506 kg

DRUGS (6)
  1. CONCERTA [Concomitant]
     Indication: ATTENTION DEFICIT/HYPERACTIVITY DISORDER
     Dosage: 35 MG, UNK
     Route: 048
  2. YASMIN [Suspect]
     Dosage: UNK
     Dates: start: 20060201, end: 20080201
  3. YASMIN [Suspect]
     Indication: ORAL CONTRACEPTION
     Dosage: UNK
     Dates: start: 20040801, end: 20041201
  4. ANTIBIOTICS [Concomitant]
  5. NSAID'S [Concomitant]
  6. ANTI-ASTHMATICS [Concomitant]

REACTIONS (2)
  - PULMONARY EMBOLISM [None]
  - DEEP VEIN THROMBOSIS [None]
